FAERS Safety Report 20931170 (Version 1)
Quarter: 2022Q2

REPORT INFORMATION
  Report Type: Spontaneous
  Country: FR (occurrence: FR)
  Receive Date: 20220608
  Receipt Date: 20220608
  Transmission Date: 20220721
  Serious: Yes (Hospitalization)
  Sender: FDA-Public Use
  Company Number: None

PATIENT
  Age: 88 Year
  Sex: Male
  Weight: 60 kg

DRUGS (11)
  1. LERCANIDIPINE HYDROCHLORIDE [Suspect]
     Active Substance: LERCANIDIPINE HYDROCHLORIDE
     Indication: Hypertension
     Dosage: THERAPY START DATE :  ASKED BUT UNKNOWN, UNIT DOSE : 10 MG, FREQUENCY TIME : 1 DAYS
     Route: 048
     Dates: end: 20220509
  2. PAROXETINE HYDROCHLORIDE [Suspect]
     Active Substance: PAROXETINE HYDROCHLORIDE
     Indication: Mental disorder
     Dosage: THERAPY START DATE :  ASKED BUT UNKNOWN, UNIT DOSE : 20 MG, FREQUENCY TIME : 1 DAYS
     Route: 048
  3. FUROSEMIDE [Suspect]
     Active Substance: FUROSEMIDE
     Indication: Hypertension
     Dosage: THERAPY START DATE :  ASKED BUT UNKNOWN, UNIT DOSE : 40 MG, FREQUENCY TIME : 1 DAYS
     Route: 048
  4. ALPRAZOLAM [Suspect]
     Active Substance: ALPRAZOLAM
     Indication: Anxiety
     Dosage: THERAPY START DATE :  ASKED BUT UNKNOWN, UNIT DOSE : 0.5 MG, FREQUENCY TIME : 1 DAYS
     Route: 048
     Dates: end: 20220504
  5. NEFOPAM HYDROCHLORIDE [Suspect]
     Active Substance: NEFOPAM HYDROCHLORIDE
     Indication: Pain
     Dosage: IF NECESSARY, THERAPY START DATE :  ASKED BUT UNKNOWN
     Route: 051
     Dates: end: 20220501
  6. BEPANTHEN [Concomitant]
     Dosage: UNIT STRENGTH: 5%
  7. TRANSIPEG [Concomitant]
     Dosage: STRENGTH : 5.9 GRAM
  8. KARDEGIC [Concomitant]
     Active Substance: ASPIRIN DL-LYSINE
  9. AVODART [Concomitant]
     Active Substance: DUTASTERIDE
     Dosage: STRENGTH : 0.5 MG
  10. ACETAMINOPHEN [Concomitant]
     Active Substance: ACETAMINOPHEN
  11. ELIQUIS [Concomitant]
     Active Substance: APIXABAN
     Dosage: STRENGTH: 2.5 MG

REACTIONS (1)
  - Fall [Not Recovered/Not Resolved]

NARRATIVE: CASE EVENT DATE: 20220501
